FAERS Safety Report 22924279 (Version 2)
Quarter: 2023Q4

REPORT INFORMATION
  Report Type: Spontaneous
  Country: FR (occurrence: FR)
  Receive Date: 20230908
  Receipt Date: 20231218
  Transmission Date: 20240110
  Serious: Yes (Other)
  Sender: FDA-Public Use
  Company Number: None

PATIENT
  Age: 24 Year
  Sex: Male
  Weight: 64 kg

DRUGS (2)
  1. ELEXACAFTOR\IVACAFTOR\TEZACAFTOR [Suspect]
     Active Substance: ELEXACAFTOR\IVACAFTOR\TEZACAFTOR
     Indication: Cystic fibrosis
     Dosage: 2 TABS AM (75MG IVA/50MG TEZA/100MG ELEXA)
     Route: 048
     Dates: start: 20230711
  2. KALYDECO [Suspect]
     Active Substance: IVACAFTOR
     Indication: Cystic fibrosis
     Dosage: 1 TAB PM
     Route: 048
     Dates: start: 20230711

REACTIONS (3)
  - Rash [Recovered/Resolved]
  - Condition aggravated [Not Recovered/Not Resolved]
  - Haematospermia [Not Recovered/Not Resolved]

NARRATIVE: CASE EVENT DATE: 20230718
